FAERS Safety Report 25357364 (Version 1)
Quarter: 2025Q2

REPORT INFORMATION
  Report Type: Spontaneous
  Country: US (occurrence: US)
  Receive Date: 20250526
  Receipt Date: 20250526
  Transmission Date: 20250717
  Serious: No
  Sender: TAKEDA
  Company Number: US-TAKEDA-2025TUS046477

PATIENT
  Age: 9 Year
  Sex: Male
  Weight: 25 kg

DRUGS (3)
  1. ADDERALL XR [Suspect]
     Active Substance: AMPHETAMINE ASPARTATE\AMPHETAMINE SULFATE\DEXTROAMPHETAMINE SACCHARATE\DEXTROAMPHETAMINE SULFATE
     Indication: Attention deficit hyperactivity disorder
  2. METHYLPHENIDATE [Suspect]
     Active Substance: METHYLPHENIDATE
     Indication: Attention deficit hyperactivity disorder
  3. DAYTRANA [Suspect]
     Active Substance: METHYLPHENIDATE
     Indication: Attention deficit hyperactivity disorder

REACTIONS (7)
  - Product availability issue [Unknown]
  - Therapeutic product effect delayed [Unknown]
  - Insurance issue [Unknown]
  - Skin irritation [Recovered/Resolved]
  - Abnormal behaviour [Unknown]
  - Disturbance in attention [Unknown]
  - Drug ineffective [Unknown]
